FAERS Safety Report 4987081-1 (Version None)
Quarter: 2006Q2

REPORT INFORMATION
  Report Type: 
  Country: None (occurrence: None)
  Receive Date: 20060501
  Receipt Date: 20060222
  Transmission Date: 20061013
  Serious: Yes (Death, Hospitalization)
  Sender: FDA-Public Use
  Company Number: NL-GLAXOSMITHKLINE-B0414162A

PATIENT
  Age: 84 Year
  Sex: Female

DRUGS (5)
  1. ROSIGLITAZONE MALEATE [Suspect]
     Dosage: 4MG PER DAY
     Route: 065
     Dates: start: 20051107
  2. AMARYL [Concomitant]
     Dosage: 4MG PER DAY
  3. SELOKEEN [Concomitant]
     Dosage: 100MG PER DAY
  4. COZAAR [Concomitant]
     Dosage: 50MG PER DAY
  5. ALDACTONE [Concomitant]
     Dosage: 50MG PER DAY

REACTIONS (2)
  - CARDIAC FAILURE CONGESTIVE [None]
  - MELAENA [None]
